FAERS Safety Report 25387429 (Version 8)
Quarter: 2025Q4

REPORT INFORMATION
  Report Type: Report from Study
  Country: EU (occurrence: EU)
  Receive Date: 20250602
  Receipt Date: 20251203
  Transmission Date: 20260118
  Serious: Yes (Hospitalization)
  Sender: ABBVIE
  Company Number: EU-ABBVIE-6284498

PATIENT
  Age: 75 Year
  Sex: Male

DRUGS (10)
  1. FOSCARBIDOPA\FOSLEVODOPA [Suspect]
     Active Substance: FOSCARBIDOPA\FOSLEVODOPA
     Indication: Parkinson^s disease
     Dosage: CRN: 0.25 ML/H, CR: 0.34 ML/H, CRH: 0.38 ML/H, ED 0.15 ML,?LAST ADMIN DATE: MAY 2025
     Route: 058
     Dates: start: 20250513
  2. FOSCARBIDOPA\FOSLEVODOPA [Suspect]
     Active Substance: FOSCARBIDOPA\FOSLEVODOPA
     Dosage: CRN: 0.25 ML/H, CR: 0.34 ML/H, CRH: 0.20 ML,
     Route: 058
     Dates: start: 202505, end: 202505
  3. FOSCARBIDOPA\FOSLEVODOPA [Suspect]
     Active Substance: FOSCARBIDOPA\FOSLEVODOPA
     Dosage: CRN: 0.30 ML/H, CR: 0.42 ML/H, CRH: 0.48 ML/H, ED: 0.20 ML,
     Route: 058
     Dates: start: 202505, end: 202505
  4. FOSCARBIDOPA\FOSLEVODOPA [Suspect]
     Active Substance: FOSCARBIDOPA\FOSLEVODOPA
     Dosage: CRL: 0.25 ML/H, CR: 0.42 ML/H, CRH: 0.48 ML/H, ED: 0.20 ML,
     Route: 058
     Dates: start: 202505, end: 202505
  5. FOSCARBIDOPA\FOSLEVODOPA [Suspect]
     Active Substance: FOSCARBIDOPA\FOSLEVODOPA
     Dosage: CRN: 0,25 ML/H, CR: 0,42 ML/H, CRH: 0,46 ML/H, ED: 0,20 ML,
     Route: 058
     Dates: start: 202505, end: 202505
  6. FOSCARBIDOPA\FOSLEVODOPA [Suspect]
     Active Substance: FOSCARBIDOPA\FOSLEVODOPA
     Dosage: CRN: 0.25 ML/H, CR: 0.48 ML/H, CRH: 0.52 ML/H, ED: 0.20 ML,
     Route: 058
     Dates: start: 202505, end: 202505
  7. FOSCARBIDOPA\FOSLEVODOPA [Suspect]
     Active Substance: FOSCARBIDOPA\FOSLEVODOPA
     Dosage: CRN: 0.28 ML/H, CR: 0.48 ML/H, CRH: 0,52 ML/H, ED: 0.20 ML,
     Route: 058
     Dates: start: 202505, end: 202505
  8. FOSCARBIDOPA\FOSLEVODOPA [Suspect]
     Active Substance: FOSCARBIDOPA\FOSLEVODOPA
     Dosage: CRN: 0.25 ML/H, CR: 0.52 ML/H, CRH: 0.54 ML/H, ED: 0.20 ML,?LAST ADMIN DATE 2025
     Route: 058
     Dates: start: 202505
  9. FOSCARBIDOPA\FOSLEVODOPA [Suspect]
     Active Substance: FOSCARBIDOPA\FOSLEVODOPA
     Dosage: CRN: 0.25 ML/H, CR: 0.50 ML/H, CRH: 0.52 ML/H, ED: 0.20 ML
     Route: 058
     Dates: start: 202505
  10. QUETIAPINE [Suspect]
     Active Substance: QUETIAPINE
     Indication: Product used for unknown indication
     Route: 065

REACTIONS (13)
  - Haematemesis [Recovered/Resolved]
  - Infusion site bruising [Unknown]
  - On and off phenomenon [Recovered/Resolved]
  - Hallucination [Recovered/Resolved]
  - Dyspepsia [Recovered/Resolved]
  - Dizziness [Recovered/Resolved]
  - Infusion site erythema [Recovered/Resolved]
  - Diplopia [Not Recovered/Not Resolved]
  - Infusion site induration [Recovered/Resolved]
  - Dyskinesia [Recovered/Resolved]
  - Infusion site discolouration [Recovered/Resolved]
  - Weight decreased [Not Recovered/Not Resolved]
  - Hypotension [Recovered/Resolved]

NARRATIVE: CASE EVENT DATE: 20250101
